FAERS Safety Report 19319137 (Version 1)
Quarter: 2021Q2

REPORT INFORMATION
  Report Type: Spontaneous
  Country: US (occurrence: US)
  Receive Date: 20210528
  Receipt Date: 20210528
  Transmission Date: 20210717
  Serious: Yes (Other)
  Sender: FDA-Public Use
  Company Number: US-PURDUE-USA-2020-0223614

PATIENT
  Sex: Male

DRUGS (2)
  1. OXYCONTIN [Suspect]
     Active Substance: OXYCODONE HYDROCHLORIDE
     Indication: PAIN MANAGEMENT
     Dosage: 300 MG, DAILY
     Route: 048
  2. OXYCONTIN [Suspect]
     Active Substance: OXYCODONE HYDROCHLORIDE
     Dosage: UNK (DOSE SLOWLY DECREASE)
     Route: 048

REACTIONS (9)
  - Panic attack [Unknown]
  - Hypertension [Unknown]
  - Depression [Unknown]
  - Insomnia [Unknown]
  - Drug dependence [Unknown]
  - Quality of life decreased [Unknown]
  - Mood swings [Unknown]
  - Weight increased [Unknown]
  - Anxiety [Unknown]
